FAERS Safety Report 22308172 (Version 2)
Quarter: 2023Q2

REPORT INFORMATION
  Report Type: Spontaneous
  Country: US (occurrence: US)
  Receive Date: 20230511
  Receipt Date: 20230622
  Transmission Date: 20230721
  Serious: Yes (Other)
  Sender: FDA-Public Use
  Company Number: US-PFIZER INC-202300181372

PATIENT
  Age: 8 Decade
  Sex: Female

DRUGS (3)
  1. PALBOCICLIB [Suspect]
     Active Substance: PALBOCICLIB
     Indication: Invasive ductal breast carcinoma
     Dosage: UNK
  2. LETROZOLE [Suspect]
     Active Substance: LETROZOLE
     Indication: Invasive ductal breast carcinoma
     Dosage: UNK
  3. DENOSUMAB [Suspect]
     Active Substance: DENOSUMAB
     Indication: Invasive ductal breast carcinoma
     Dosage: UNK

REACTIONS (8)
  - Seizure [Recovered/Resolved]
  - Nausea [Recovered/Resolved]
  - Weight decreased [Recovered/Resolved]
  - Vomiting [Recovered/Resolved]
  - Decreased appetite [Recovered/Resolved]
  - Hyperhidrosis [Recovered/Resolved]
  - Constipation [Recovered/Resolved]
  - Migraine [Recovered/Resolved]
